FAERS Safety Report 26061994 (Version 1)
Quarter: 2025Q4

REPORT INFORMATION
  Report Type: Spontaneous
  Country: CN (occurrence: CN)
  Receive Date: 20251119
  Receipt Date: 20251119
  Transmission Date: 20260117
  Serious: Yes (Other)
  Sender: ABBVIE
  Company Number: CN-PFIZER INC-PV202500133056

PATIENT
  Age: 46 Year
  Sex: Female

DRUGS (4)
  1. AVIBACTAM\AZTREONAM [Suspect]
     Active Substance: AVIBACTAM\AZTREONAM
     Indication: Anti-infective therapy
     Dosage: 2 G, 4X/DAY (Q6H)
     Route: 065
     Dates: start: 20251003
  2. CLARITHROMYCIN [Concomitant]
     Active Substance: CLARITHROMYCIN
     Indication: Anti-infective therapy
     Dates: start: 20251003
  3. CONTEZOLID [Concomitant]
     Active Substance: CONTEZOLID
     Indication: Anti-infective therapy
     Dates: start: 20251003
  4. VORICONAZOLE [Concomitant]
     Active Substance: VORICONAZOLE
     Indication: Anti-infective therapy
     Dates: start: 20251003

REACTIONS (6)
  - Hypertension [Unknown]
  - Productive cough [Unknown]
  - Tachypnoea [Unknown]
  - Cough [Unknown]
  - Body temperature increased [Unknown]
  - Heart rate increased [Unknown]

NARRATIVE: CASE EVENT DATE: 20251006
